FAERS Safety Report 8811189 (Version 1)
Quarter: 2012Q4

REPORT INFORMATION
  Report Type: Spontaneous
  Country: US (occurrence: None)
  Receive Date: 20120925
  Receipt Date: 20120925
  Transmission Date: 20130627
  Serious: Yes (Hospitalization)
  Sender: FDA-Public Use
  Company Number: None

PATIENT
  Age: 57 Year
  Sex: Female
  Weight: 95.26 kg

DRUGS (2)
  1. LYRICA [Suspect]
     Indication: BACK SURGERY
     Dosage: 50 mg  3xs a day po
     Route: 048
     Dates: start: 20120827, end: 20120916
  2. LYRICA [Suspect]
     Indication: PAIN
     Dosage: 50 mg  3xs a day po
     Route: 048
     Dates: start: 20120827, end: 20120916

REACTIONS (9)
  - Pruritus [None]
  - Urticaria [None]
  - Diarrhoea [None]
  - Vomiting [None]
  - Feeling cold [None]
  - Headache [None]
  - Confusional state [None]
  - Decreased appetite [None]
  - Pain [None]
